FAERS Safety Report 5982190-2 (Version None)
Quarter: 2008Q4

REPORT INFORMATION
  Report Type: 
  Country: None (occurrence: None)
  Receive Date: 20081208
  Receipt Date: 20081201
  Transmission Date: 20090506
  Serious: Yes (Hospitalization, Other)
  Sender: FDA-Public Use
  Company Number: CA-JNJFOC-20081105869

PATIENT
  Sex: Male

DRUGS (4)
  1. DURAGESIC-100 [Suspect]
     Indication: FIBROMYALGIA
     Route: 062
  2. DURAGESIC-100 [Suspect]
     Indication: PAIN
     Route: 062
  3. LORAZEPAM [Concomitant]
  4. BACLOFEN [Concomitant]

REACTIONS (12)
  - DIZZINESS [None]
  - DYSPNOEA [None]
  - EUPHORIC MOOD [None]
  - FATIGUE [None]
  - INAPPROPRIATE SCHEDULE OF DRUG ADMINISTRATION [None]
  - MALAISE [None]
  - NAUSEA [None]
  - PAIN [None]
  - PALPITATIONS [None]
  - PRODUCT QUALITY ISSUE [None]
  - SEDATION [None]
  - SOMNOLENCE [None]
